FAERS Safety Report 21244284 (Version 2)
Quarter: 2022Q4

REPORT INFORMATION
  Report Type: Spontaneous
  Country: CN (occurrence: CN)
  Receive Date: 20220823
  Receipt Date: 20221010
  Transmission Date: 20230113
  Serious: Yes (Other)
  Sender: FDA-Public Use
  Company Number: CN-OTSUKA-2022_041556

PATIENT
  Age: 82 Year
  Sex: Male
  Weight: 42 kg

DRUGS (4)
  1. TOLVAPTAN [Suspect]
     Active Substance: TOLVAPTAN
     Indication: Left ventricular failure
     Dosage: 7.5 MG, QD
     Route: 048
     Dates: start: 20220810, end: 20220812
  2. CEFOPERAZONE\TAZOBACTAM SODIUM [Suspect]
     Active Substance: CEFOPERAZONE\TAZOBACTAM SODIUM
     Indication: Chronic obstructive pulmonary disease
     Dosage: 2.25 G, BID
     Route: 042
     Dates: start: 20220810, end: 20220812
  3. ROSUVASTATIN CALCIUM [Suspect]
     Active Substance: ROSUVASTATIN CALCIUM
     Indication: Arteriosclerosis coronary artery
     Dosage: 10 MG, QD
     Route: 048
     Dates: start: 20220810, end: 20220812
  4. SODIUM CHLORIDE [Suspect]
     Active Substance: SODIUM CHLORIDE
     Indication: Vehicle solution use
     Dosage: 100 ML, BID
     Route: 042
     Dates: start: 20220810, end: 20220812

REACTIONS (2)
  - Transaminases increased [Recovering/Resolving]
  - Underdose [Unknown]

NARRATIVE: CASE EVENT DATE: 20220810
